FAERS Safety Report 15092982 (Version 2)
Quarter: 2018Q3

REPORT INFORMATION
  Report Type: Spontaneous
  Country: JP (occurrence: JP)
  Receive Date: 20180629
  Receipt Date: 20180716
  Transmission Date: 20181010
  Serious: Yes (Death, Other)
  Sender: FDA-Public Use
  Company Number: JP-NAPPMUNDI-GBR-2018-0057076

PATIENT
  Age: 78 Year
  Sex: Male

DRUGS (14)
  1. OXIFAST [Suspect]
     Active Substance: OXYCODONE
     Indication: CANCER PAIN
     Dosage: 72 MG, DAILY
     Route: 065
     Dates: start: 20180529, end: 20180607
  2. FENTOS [Concomitant]
     Active Substance: FENTANYL
     Dosage: 3 MG, DAILY
     Route: 065
     Dates: start: 20180511, end: 20180523
  3. CALONAL [Concomitant]
     Active Substance: ACETAMINOPHEN
     Indication: CANCER PAIN
     Dosage: UNK
     Route: 048
     Dates: end: 20180530
  4. OXYCODONE HYDROCHLORIDE. [Concomitant]
     Active Substance: OXYCODONE HYDROCHLORIDE
     Indication: CANCER PAIN
     Dosage: 20 MG, DAILY
     Route: 048
     Dates: start: 20180313, end: 20180322
  5. FLUOROURACIL. [Concomitant]
     Active Substance: FLUOROURACIL
     Indication: PROSTATE CANCER
  6. XARELTO [Concomitant]
     Active Substance: RIVAROXABAN
     Indication: ATRIAL FLUTTER
     Dosage: UNK
     Route: 048
     Dates: end: 20180530
  7. BISOPROLOL FUMARATE. [Concomitant]
     Active Substance: BISOPROLOL FUMARATE
     Indication: HYPERTENSION
     Dosage: UNK
     Route: 048
     Dates: end: 20180530
  8. FENTOS [Concomitant]
     Active Substance: FENTANYL
     Dosage: 2 MG, DAILY
     Route: 065
     Dates: start: 20180509, end: 20180510
  9. FENTOS [Concomitant]
     Active Substance: FENTANYL
     Indication: CANCER PAIN
     Dosage: 4 MG, DAILY
     Route: 065
     Dates: start: 20180524, end: 20180528
  10. PITAVASTATIN CALCIUM [Concomitant]
     Active Substance: PITAVASTATIN CALCIUM
     Indication: HYPERTENSION
     Dosage: UNK
     Route: 048
     Dates: end: 20180530
  11. FLUOROURACIL. [Concomitant]
     Active Substance: FLUOROURACIL
     Indication: TONGUE NEOPLASM MALIGNANT STAGE UNSPECIFIED
     Dosage: UNK
     Route: 065
     Dates: start: 20180418, end: 20180422
  12. OXYCODONE HYDROCHLORIDE. [Concomitant]
     Active Substance: OXYCODONE HYDROCHLORIDE
     Dosage: 10 MG, DAILY
     Route: 048
     Dates: start: 20180309, end: 20180312
  13. FENTOS [Concomitant]
     Active Substance: FENTANYL
     Dosage: 1 MG, DAILY
     Route: 065
     Dates: start: 20180323, end: 20180508
  14. MAGNESIUM OXIDE. [Concomitant]
     Active Substance: MAGNESIUM OXIDE
     Indication: CONSTIPATION
     Dosage: 1980 MG, DAILY
     Route: 048
     Dates: end: 20180530

REACTIONS (3)
  - Tongue neoplasm malignant stage unspecified [Fatal]
  - Delirium [Not Recovered/Not Resolved]
  - Prostate cancer [Fatal]

NARRATIVE: CASE EVENT DATE: 20180531
